FAERS Safety Report 25236127 (Version 2)
Quarter: 2025Q2

REPORT INFORMATION
  Report Type: Spontaneous
  Country: US (occurrence: US)
  Receive Date: 20250424
  Receipt Date: 20250424
  Transmission Date: 20250716
  Serious: Yes (Life-Threatening, Hospitalization, Other)
  Sender: GILEAD
  Company Number: US-GILEAD-2025-0710996

PATIENT
  Age: 63 Year
  Sex: Female
  Weight: 73.4 kg

DRUGS (1)
  1. YESCARTA [Suspect]
     Active Substance: AXICABTAGENE CILOLEUCEL
     Indication: Follicular lymphoma
     Dosage: 68 ML, QD (1.5 X 10E6 CELLS/ ML)
     Route: 041
     Dates: start: 20241231, end: 20241231

REACTIONS (2)
  - Immune effector cell-associated neurotoxicity syndrome [Recovered/Resolved]
  - Cytokine release syndrome [Recovered/Resolved]

NARRATIVE: CASE EVENT DATE: 20250105
